FAERS Safety Report 7315970-1 (Version None)
Quarter: 2011Q1

REPORT INFORMATION
  Report Type: 
  Country: None (occurrence: None)
  Receive Date: 20110225
  Receipt Date: 20110215
  Transmission Date: 20110831
  Serious: Yes (Other)
  Sender: FDA-Public Use
  Company Number: US-ELI_LILLY_AND_COMPANY-US201101003830

PATIENT
  Age: 74 Year
  Sex: Male

DRUGS (3)
  1. TESTOSTERONE [Concomitant]
  2. HYDROCORTISONE [Concomitant]
  3. FORTEO [Suspect]
     Indication: OSTEOPOROSIS
     Dosage: 20 UG, DAILY (1/D)
     Dates: start: 20100915

REACTIONS (3)
  - RED BLOOD CELL COUNT INCREASED [None]
  - HYPOGONADISM [None]
  - HAEMATOCRIT INCREASED [None]
